FAERS Safety Report 10183740 (Version 1)
Quarter: 2014Q2

REPORT INFORMATION
  Report Type: Spontaneous
  Country: GB (occurrence: GB)
  Receive Date: 20140520
  Receipt Date: 20140520
  Transmission Date: 20141212
  Serious: Yes (Death, Other)
  Sender: FDA-Public Use
  Company Number: GB-BRISTOL-MYERS SQUIBB COMPANY-20752879

PATIENT
  Age: 68 Year
  Sex: Male

DRUGS (8)
  1. ARIPIPRAZOLE [Suspect]
     Indication: SCHIZOPHRENIA, PARANOID TYPE
     Route: 048
  2. METFORMIN HCL [Suspect]
     Route: 048
  3. ASPIRIN [Suspect]
     Dosage: DISPERSIBLE
     Route: 048
  4. CLOZARIL [Suspect]
     Indication: SCHIZOPHRENIA, PARANOID TYPE
     Dosage: TABLET?100 MG IN MORNING AND 300 MG IN NIGHT.
     Route: 048
     Dates: start: 20010701
  5. FLUOXETINE [Suspect]
     Indication: SCHIZOPHRENIA, PARANOID TYPE
     Route: 048
  6. FYBOGEL [Concomitant]
     Route: 048
  7. LACTULOSE [Concomitant]
     Route: 048
  8. SIMVASTATIN [Concomitant]
     Route: 048

REACTIONS (3)
  - Myocardial infarction [Fatal]
  - Diabetes mellitus [Unknown]
  - Blood cholesterol increased [Unknown]
